FAERS Safety Report 4437416-3 (Version None)
Quarter: 2004Q3

REPORT INFORMATION
  Report Type: 
  Country: None (occurrence: None)
  Receive Date: 20040830
  Receipt Date: 20040830
  Transmission Date: 20050211
  Serious: No
  Sender: FDA-Public Use
  Company Number: None

PATIENT
  Age: 52 Year
  Sex: Male
  Weight: 74.8435 kg

DRUGS (2)
  1. GAMIMUNE N 10% [Suspect]
     Indication: MYASTHENIA GRAVIS
     Dosage: 170 GRAMS OVER 1 DAY INTRAVENOUS
     Route: 042
     Dates: start: 20040809, end: 20040809
  2. IMMUNE GLOBULIN INTRAVENOUS (HUMAN) [Concomitant]

REACTIONS (2)
  - DYSPNOEA [None]
  - URTICARIA [None]
